FAERS Safety Report 17444781 (Version 1)
Quarter: 2020Q1

REPORT INFORMATION
  Report Type: Spontaneous
  Country: US (occurrence: US)
  Receive Date: 20200221
  Receipt Date: 20200221
  Transmission Date: 20200409
  Serious: No
  Sender: FDA-Public Use
  Company Number: None

PATIENT
  Age: 60 Year
  Sex: Female

DRUGS (12)
  1. OMEPRAZOLE. [Concomitant]
     Active Substance: OMEPRAZOLE
  2. XOPENEX [Concomitant]
     Active Substance: LEVALBUTEROL HYDROCHLORIDE
  3. SPIRONOLACT [Concomitant]
     Active Substance: SPIRONOLACTONE
  4. OXYCODONE [Concomitant]
     Active Substance: OXYCODONE
  5. BISOPROL [Concomitant]
     Active Substance: BISOPROLOL FUMARATE
  6. BENADRYL [Concomitant]
     Active Substance: DIPHENHYDRAMINE HYDROCHLORIDE
  7. TADALAFIL. [Suspect]
     Active Substance: TADALAFIL
     Indication: PULMONARY HYPERTENSION
     Route: 048
     Dates: start: 20191010
  8. NORCO [Concomitant]
     Active Substance: ACETAMINOPHEN\HYDROCODONE BITARTRATE
  9. METOLAZONE. [Concomitant]
     Active Substance: METOLAZONE
  10. LETARIS [Concomitant]
     Active Substance: AMBRISENTAN
  11. POTASSIUM [Concomitant]
     Active Substance: POTASSIUM
  12. FUROSEMIDE. [Concomitant]
     Active Substance: FUROSEMIDE

REACTIONS (1)
  - Sinonasal obstruction [None]
